FAERS Safety Report 6882216-8 (Version None)
Quarter: 2010Q3

REPORT INFORMATION
  Report Type: 
  Country: None (occurrence: None)
  Receive Date: 20100702
  Receipt Date: 20091201
  Transmission Date: 20110219
  Serious: Yes (Other)
  Sender: FDA-Public Use
  Company Number: 2009308089

PATIENT
  Age: 26 Year
  Sex: Female
  Weight: 54.4 kg

DRUGS (1)
  1. ZOLOFT [Suspect]
     Dosage: 100 MG, 1X/DAY, ORAL
     Route: 048
     Dates: start: 20091020, end: 20091110

REACTIONS (2)
  - ALOPECIA [None]
  - SEROTONIN SYNDROME [None]
